FAERS Safety Report 5300405-0 (Version None)
Quarter: 2007Q2

REPORT INFORMATION
  Report Type: 
  Country: None (occurrence: None)
  Receive Date: 20070413
  Receipt Date: 20070413
  Transmission Date: 20071010
  Serious: Yes (Other)
  Sender: FDA-Public Use
  Company Number: None

PATIENT
  Age: 67 Year
  Sex: Male
  Weight: 80 kg

DRUGS (1)
  1. CUBICIN [Suspect]
     Indication: ENTEROCOCCAL INFECTION
     Dosage: 325 MG Q 24 IV
     Route: 042
     Dates: start: 20070328, end: 20070409

REACTIONS (1)
  - BLOOD CREATINE PHOSPHOKINASE INCREASED [None]
